FAERS Safety Report 6335898-3 (Version None)
Quarter: 2009Q3

REPORT INFORMATION
  Report Type: 
  Country: None (occurrence: None)
  Receive Date: 20090901
  Receipt Date: 20090820
  Transmission Date: 20100115
  Serious: Yes (Hospitalization)
  Sender: FDA-Public Use
  Company Number: TR-RANBAXY-2009RR-26655

PATIENT
  Age: 63 Year
  Sex: Female

DRUGS (3)
  1. GABAPENTIN [Suspect]
     Indication: DIABETIC NEUROPATHY
     Dosage: 300 MG, TID
  2. INSULIN [Concomitant]
     Indication: TYPE 2 DIABETES MELLITUS
  3. IRBESARTAN [Concomitant]
     Indication: HYPERTENSION

REACTIONS (1)
  - RHABDOMYOLYSIS [None]
